FAERS Safety Report 7462592-8 (Version None)
Quarter: 2011Q2

REPORT INFORMATION
  Report Type: 
  Country: None (occurrence: None)
  Receive Date: 20110506
  Receipt Date: 20110502
  Transmission Date: 20111010
  Serious: Yes (Other)
  Sender: FDA-Public Use
  Company Number: JP-PFIZER INC-2011093855

PATIENT
  Age: 58 Year
  Sex: Female

DRUGS (5)
  1. RANITIDINE [Concomitant]
  2. VALSARTAN [Concomitant]
  3. SUNITINIB MALATE [Suspect]
     Indication: METASTATIC RENAL CELL CARCINOMA
     Dosage: 50 MG, FOR 4 WEEKS, FOLLOWED BY 2 WEEKS OFF
  4. LEVOTHYROXINE SODIUM [Concomitant]
     Indication: GOITRE
     Dosage: 50 UG, DAILY
  5. LEVOTHYROXINE SODIUM [Concomitant]
     Dosage: 50 UG, DAILY

REACTIONS (3)
  - HYPERTHYROIDISM [None]
  - HYPOTHYROIDISM [None]
  - THYROIDITIS [None]
